FAERS Safety Report 7261091-6 (Version None)
Quarter: 2011Q1

REPORT INFORMATION
  Report Type: 
  Country: None (occurrence: None)
  Receive Date: 20110130
  Receipt Date: 20101228
  Transmission Date: 20110831
  Serious: No
  Sender: FDA-Public Use
  Company Number: US-ABBOTT-10P-163-0694074-00

PATIENT
  Sex: Male
  Weight: 108.96 kg

DRUGS (2)
  1. HUMIRA [Suspect]
     Indication: CROHN'S DISEASE
     Route: 058
     Dates: start: 20101001, end: 20101201
  2. HUMIRA [Suspect]
     Route: 058
     Dates: start: 20101201, end: 20101228

REACTIONS (2)
  - CROHN'S DISEASE [None]
  - DRUG INEFFECTIVE [None]
